FAERS Safety Report 25229338 (Version 1)
Quarter: 2025Q2

REPORT INFORMATION
  Report Type: Spontaneous
  Country: US (occurrence: None)
  Receive Date: 20250422
  Receipt Date: 20250422
  Transmission Date: 20250717
  Serious: No
  Sender: FDA-CTU
  Company Number: None

PATIENT
  Age: 62 Year
  Sex: Male

DRUGS (1)
  1. LENALIDOMIDE [Suspect]
     Active Substance: LENALIDOMIDE
     Indication: Plasma cell myeloma
     Dosage: FREQUENCY : DAILY;?
     Route: 048
     Dates: start: 20250313

REACTIONS (6)
  - Nausea [None]
  - Abscess [None]
  - Pain [None]
  - Systemic infection [None]
  - Hidradenitis [None]
  - Constipation [None]

NARRATIVE: CASE EVENT DATE: 20250421
